FAERS Safety Report 9079196 (Version 1)
Quarter: 2013Q1

REPORT INFORMATION
  Report Type: Report from Study
  Country: US (occurrence: US)
  Receive Date: 20130130
  Receipt Date: 20130130
  Transmission Date: 20140127
  Serious: No
  Sender: FDA-Public Use
  Company Number: US-ABBOTT-12P-163-0956739-00

PATIENT
  Age: 57 None
  Sex: Male

DRUGS (6)
  1. HUMIRA 40 MG/0.8 ML PEN [Suspect]
     Indication: SPONDYLOARTHROPATHY
     Dates: start: 201111
  2. DICLOFENAC [Concomitant]
     Indication: PAIN
     Dosage: TWICE DAILY, AS NEEDED
  3. VITAMINS [Concomitant]
     Indication: PRODUCT USED FOR UNKNOWN INDICATION
     Dosage: ONCE DAILY
  4. ADVIL [Concomitant]
     Indication: PAIN
  5. ZYRTEC [Concomitant]
     Indication: SEASONAL ALLERGY
  6. ZYRTEC [Concomitant]
     Indication: ASTHMA

REACTIONS (4)
  - Injection site vesicles [Recovered/Resolved]
  - Device malfunction [Recovered/Resolved]
  - Incorrect dose administered [Recovered/Resolved]
  - Injection site pain [Recovered/Resolved]
